FAERS Safety Report 13630647 (Version 1)
Quarter: 2017Q2

REPORT INFORMATION
  Report Type: Spontaneous
  Country: US (occurrence: US)
  Receive Date: 20170531
  Receipt Date: 20170531
  Transmission Date: 20170830
  Serious: No
  Sender: FDA-Public Use
  Company Number: US-ASTELLAS-1317035

PATIENT
  Sex: Female

DRUGS (5)
  1. DULERA [Concomitant]
     Active Substance: FORMOTEROL FUMARATE DIHYDRATE\MOMETASONE FUROATE
     Route: 065
  2. TRAMADOL. [Concomitant]
     Active Substance: TRAMADOL
     Route: 065
  3. XGEVA [Concomitant]
     Active Substance: DENOSUMAB
     Dosage: PER 1.7 ML VIAL
     Route: 065
  4. TARCEVA [Suspect]
     Active Substance: ERLOTINIB HYDROCHLORIDE
     Indication: LUNG NEOPLASM MALIGNANT
     Route: 048
     Dates: start: 20130710, end: 20140104
  5. VITAMIN D3 [Concomitant]
     Active Substance: CHOLECALCIFEROL
     Dosage: 2000 UNITS
     Route: 065

REACTIONS (4)
  - Vomiting [Unknown]
  - Dermatitis acneiform [Unknown]
  - Abdominal pain [Unknown]
  - Drug ineffective [Unknown]
